FAERS Safety Report 5084180-3 (Version None)
Quarter: 2006Q3

REPORT INFORMATION
  Report Type: 
  Country: None (occurrence: None)
  Receive Date: 20060821
  Receipt Date: 20060313
  Transmission Date: 20061208
  Serious: No
  Sender: FDA-Public Use
  Company Number: US-BRISTOL-MYERS SQUIBB COMPANY-13311964

PATIENT
  Age: 70 Year
  Sex: Female
  Weight: 71 kg

DRUGS (1)
  1. TEQUIN [Suspect]
     Indication: KIDNEY INFECTION
     Route: 042
     Dates: start: 20020101

REACTIONS (2)
  - BLOOD GLUCOSE ABNORMAL [None]
  - RASH GENERALISED [None]
